FAERS Safety Report 19795474 (Version 2)
Quarter: 2021Q3

REPORT INFORMATION
  Report Type: Spontaneous
  Country: DK (occurrence: DK)
  Receive Date: 20210906
  Receipt Date: 20210914
  Transmission Date: 20211014
  Serious: Yes (Other)
  Sender: FDA-Public Use
  Company Number: DK-TAKEDA-2021TUS054659

PATIENT
  Age: 72 Year
  Sex: Male

DRUGS (1)
  1. HYQVIA [Suspect]
     Active Substance: HUMAN IMMUNOGLOBULIN G\HYALURONIDASE RECOMBINANT HUMAN
     Indication: PRODUCT USED FOR UNKNOWN INDICATION
     Dosage: 20 GRAM
     Route: 065
     Dates: start: 20210407

REACTIONS (2)
  - Infusion site ulcer [Recovering/Resolving]
  - Infusion site necrosis [Recovering/Resolving]

NARRATIVE: CASE EVENT DATE: 20210407
